FAERS Safety Report 7898320-1 (Version None)
Quarter: 2011Q4

REPORT INFORMATION
  Report Type: 
  Country: None (occurrence: None)
  Receive Date: 20111107
  Receipt Date: 20111101
  Transmission Date: 20120403
  Serious: Yes (Hospitalization)
  Sender: FDA-Public Use
  Company Number: JP-BAYER-2011-106760

PATIENT
  Age: 78 Year
  Sex: Female

DRUGS (5)
  1. LIPITOR [Suspect]
     Dosage: DAILY DOSE 10 MG
     Route: 048
     Dates: start: 20100926
  2. ASPIRIN [Suspect]
     Indication: ANGINA PECTORIS
     Dosage: DAILY DOSE 100 MG
     Route: 048
     Dates: start: 20101012
  3. AMITRIPTYLINE HCL [Suspect]
     Dosage: DAILY DOSE 1 DF
     Route: 048
  4. LISINOPRIL [Suspect]
     Dosage: DAILY DOSE 1 DF
     Route: 048
     Dates: start: 20101012
  5. NIKORANMART [Suspect]
     Dosage: DAILY DOSE 3 DF
     Route: 048
     Dates: start: 20100926

REACTIONS (1)
  - HEPATIC FUNCTION ABNORMAL [None]
